FAERS Safety Report 23643996 (Version 1)
Quarter: 2024Q1

REPORT INFORMATION
  Report Type: Report from Study
  Country: US (occurrence: US)
  Receive Date: 20240318
  Receipt Date: 20240318
  Transmission Date: 20240410
  Serious: Yes (Other)
  Sender: FDA-Public Use
  Company Number: US-002147023-NVSC2024US056988

PATIENT
  Sex: Female

DRUGS (1)
  1. KESIMPTA [Suspect]
     Active Substance: OFATUMUMAB
     Indication: Multiple sclerosis
     Dosage: 20 MG, QMO
     Route: 058

REACTIONS (14)
  - COVID-19 [Not Recovered/Not Resolved]
  - Abnormal faeces [Unknown]
  - Faeces soft [Unknown]
  - Headache [Unknown]
  - Dry throat [Unknown]
  - Chills [Unknown]
  - Night sweats [Unknown]
  - Decreased appetite [Unknown]
  - Pyrexia [Unknown]
  - Cerebrovascular accident [Unknown]
  - Cerebral haematoma [Unknown]
  - Fall [Unknown]
  - Dental caries [Unknown]
  - Pain in jaw [Unknown]
